FAERS Safety Report 7580430-X (Version None)
Quarter: 2011Q2

REPORT INFORMATION
  Report Type: 
  Country: None (occurrence: None)
  Receive Date: 20110629
  Receipt Date: 20110609
  Transmission Date: 20111010
  Serious: Yes (Hospitalization)
  Sender: FDA-Public Use
  Company Number: A0806053A

PATIENT
  Age: 53 Year
  Sex: Female
  Weight: 106.4 kg

DRUGS (17)
  1. ZOCOR [Concomitant]
  2. NOVOLOG [Concomitant]
  3. FLOVENT [Concomitant]
  4. NEURONTIN [Concomitant]
  5. REGLAN [Concomitant]
  6. NPH INSULIN [Concomitant]
  7. GLUCOPHAGE [Concomitant]
  8. METOPROLOL TARTRATE [Concomitant]
  9. NITROGLYCERIN [Concomitant]
  10. PERCOCET [Concomitant]
  11. GLYBURIDE [Concomitant]
  12. ASPIRIN [Concomitant]
  13. LASIX [Concomitant]
  14. LISINOPRIL [Concomitant]
  15. AVANDIA [Suspect]
     Indication: DIABETES MELLITUS
     Dosage: 8MG PER DAY
     Route: 048
     Dates: start: 20000322, end: 20060301
  16. ELAVIL [Concomitant]
  17. PREVACID [Concomitant]

REACTIONS (7)
  - RENAL FAILURE [None]
  - RESPIRATORY ARREST [None]
  - MIGRAINE [None]
  - CARDIAC FAILURE [None]
  - CORONARY ARTERY DISEASE [None]
  - MYOCARDIAL INFARCTION [None]
  - CEREBROVASCULAR ACCIDENT [None]
